FAERS Safety Report 22626288 (Version 1)
Quarter: 2023Q2

REPORT INFORMATION
  Report Type: Spontaneous
  Country: US (occurrence: US)
  Receive Date: 20230621
  Receipt Date: 20230621
  Transmission Date: 20230721
  Serious: No
  Sender: FDA-Public Use
  Company Number: UNT-2022-020863

PATIENT
  Age: 37 Year
  Sex: Female

DRUGS (2)
  1. TRAMADOL HYDROCHLORIDE [Suspect]
     Active Substance: TRAMADOL HYDROCHLORIDE
     Indication: Arthralgia
  2. REMODULIN [Suspect]
     Active Substance: TREPROSTINIL
     Indication: Pulmonary arterial hypertension
     Dosage: 10MG/ML
     Route: 058
     Dates: start: 20220113

REACTIONS (6)
  - Arthralgia [Unknown]
  - Infusion site infection [Unknown]
  - Dizziness [Unknown]
  - Somnolence [Unknown]
  - Myalgia [Unknown]
  - Pain in extremity [Unknown]
